FAERS Safety Report 7500992-8 (Version None)
Quarter: 2011Q2

REPORT INFORMATION
  Report Type: 
  Country: None (occurrence: None)
  Receive Date: 20110524
  Receipt Date: 20110523
  Transmission Date: 20111010
  Serious: Yes (Hospitalization, Other)
  Sender: FDA-Public Use
  Company Number: IE-PFIZER INC-2010028495

PATIENT
  Age: 25 Year
  Sex: Female

DRUGS (6)
  1. VARENICLINE TARTRATE [Suspect]
     Dosage: 0.5 MG, 2X/DAY
     Route: 048
     Dates: start: 20100212, end: 20100212
  2. VARENICLINE TARTRATE [Suspect]
     Indication: SMOKING CESSATION THERAPY
     Dosage: 0.5 MG, 1X/DAY
     Route: 048
     Dates: start: 20100209, end: 20100211
  3. VARENICLINE TARTRATE [Suspect]
     Dosage: 1 MG, 1X/DAY
     Route: 048
     Dates: start: 20100216, end: 20100217
  4. VARENICLINE TARTRATE [Suspect]
     Dosage: 1 MG, 2X/DAY
     Route: 048
     Dates: start: 20100218, end: 20100220
  5. VARENICLINE TARTRATE [Suspect]
     Dosage: UNK
     Dates: start: 20100201, end: 20100302
  6. VARENICLINE TARTRATE [Suspect]
     Dosage: 0.5 MG, 1X/DAY
     Route: 048
     Dates: start: 20100213, end: 20100215

REACTIONS (7)
  - AGITATION [None]
  - ANXIETY [None]
  - SELF INJURIOUS BEHAVIOUR [None]
  - SCREAMING [None]
  - INSOMNIA [None]
  - CONVERSION DISORDER [None]
  - CRYING [None]
